FAERS Safety Report 15727780 (Version 1)
Quarter: 2018Q4

REPORT INFORMATION
  Report Type: Spontaneous
  Country: US (occurrence: US)
  Receive Date: 20181217
  Receipt Date: 20181217
  Transmission Date: 20190205
  Serious: No
  Sender: FDA-Public Use
  Company Number: US-PFIZER INC-2018513107

PATIENT
  Age: 55 Year
  Sex: Female

DRUGS (1)
  1. XELJANZ XR [Suspect]
     Active Substance: TOFACITINIB CITRATE
     Dosage: 11 MG, UNK
     Dates: start: 20181201, end: 20181206

REACTIONS (4)
  - Ocular hyperaemia [Unknown]
  - Nasopharyngitis [Unknown]
  - Eye irritation [Unknown]
  - Eye discharge [Unknown]

NARRATIVE: CASE EVENT DATE: 20181206
